FAERS Safety Report 25128999 (Version 1)
Quarter: 2025Q1

REPORT INFORMATION
  Report Type: Spontaneous
  Country: US (occurrence: US)
  Receive Date: 20250327
  Receipt Date: 20250327
  Transmission Date: 20250409
  Serious: No
  Sender: SANOFI AVENTIS
  Company Number: US-SA-2025SA088492

PATIENT
  Sex: Female

DRUGS (1)
  1. DUPIXENT [Suspect]
     Active Substance: DUPILUMAB
     Indication: Asthma
     Dosage: 300 MG
     Route: 058
     Dates: start: 20250212

REACTIONS (6)
  - Nasopharyngitis [Unknown]
  - Illness [Unknown]
  - Viral infection [Unknown]
  - Cough [Unknown]
  - Secretion discharge [Unknown]
  - Condition aggravated [Unknown]
